FAERS Safety Report 18010687 (Version 2)
Quarter: 2020Q4

REPORT INFORMATION
  Report Type: Report from Study
  Country: IT (occurrence: IT)
  Receive Date: 20200710
  Receipt Date: 20201027
  Transmission Date: 20210113
  Serious: Yes (Hospitalization)
  Sender: FDA-Public Use
  Company Number: NVSC2020IT125810

PATIENT
  Age: 73 Year
  Sex: Male
  Weight: 60 kg

DRUGS (16)
  1. SYNJARDY [Concomitant]
     Active Substance: EMPAGLIFLOZIN\METFORMIN HYDROCHLORIDE
     Indication: DIABETES MELLITUS
     Dosage: 12.50+1000 UNK, BID
     Route: 065
  2. TACHIDOL [Concomitant]
     Active Substance: ACETAMINOPHEN\CODEINE PHOSPHATE
     Indication: BONE PAIN
     Dosage: UNK
     Route: 065
     Dates: start: 20200130
  3. TRENTAL [Concomitant]
     Active Substance: PENTOXIFYLLINE
     Indication: ISCHAEMIC CARDIOMYOPATHY
     Dosage: 600 MG, BID
     Route: 065
     Dates: start: 20200203
  4. FLUIMUCIL [Concomitant]
     Active Substance: ACETYLCYSTEINE
     Indication: COUGH
     Dosage: UNK
     Route: 065
     Dates: start: 20191118, end: 20191122
  5. STILNOX [Concomitant]
     Active Substance: ZOLPIDEM TARTRATE
     Indication: INSOMNIA
     Dosage: UNK
     Route: 065
     Dates: start: 20200130
  6. SOLDESAM [Concomitant]
     Active Substance: DEXAMETHASONE
     Indication: PROPHYLAXIS
     Dosage: UNK
     Route: 065
     Dates: start: 20191118, end: 20191128
  7. TRIATEC [RAMIPRIL] [Concomitant]
     Active Substance: RAMIPRIL
     Indication: HYPERTENSION
     Dosage: UNK
     Route: 065
     Dates: start: 20200520
  8. MAG 2 [Concomitant]
     Active Substance: MAGNESIUM
     Indication: HYPOMAGNESAEMIA
     Dosage: UNK
     Route: 065
     Dates: start: 20191212
  9. CARDICOR [Concomitant]
     Active Substance: BISOPROLOL
     Indication: CARDIOVASCULAR DISORDER
     Dosage: 1 CP, QD
     Route: 065
     Dates: start: 201901
  10. NEXIUM [Concomitant]
     Active Substance: ESOMEPRAZOLE MAGNESIUM
     Indication: PROPHYLAXIS
     Dosage: UNK
     Route: 065
     Dates: start: 201501
  11. AUGMENTIN [Concomitant]
     Active Substance: AMOXICILLIN\CLAVULANATE POTASSIUM
     Indication: INFLUENZA
     Dosage: UNK
     Route: 065
     Dates: start: 20191118, end: 20191123
  12. OMNIC [Concomitant]
     Active Substance: TAMSULOSIN HYDROCHLORIDE
     Indication: BENIGN PROSTATIC HYPERPLASIA
     Dosage: 1 CP, QD
     Route: 065
     Dates: start: 201001
  13. CAPMATINIB [Suspect]
     Active Substance: CAPMATINIB
     Indication: NON-SMALL CELL LUNG CANCER
     Dosage: 400 UNK, BID
     Route: 048
     Dates: start: 20191128, end: 20200427
  14. ESKIM [Concomitant]
     Active Substance: OMEGA-3 FATTY ACIDS
     Indication: DIABETES MELLITUS
     Dosage: 20 MG, QD
     Route: 065
     Dates: start: 201501
  15. HUMALOG [Concomitant]
     Active Substance: INSULIN LISPRO
     Indication: DIABETES MELLITUS
     Dosage: UNK
     Route: 065
     Dates: start: 20200520
  16. PLAVIX [Concomitant]
     Active Substance: CLOPIDOGREL BISULFATE
     Indication: ISCHAEMIC CARDIOMYOPATHY
     Dosage: 75 UG, QD
     Route: 065
     Dates: start: 201501

REACTIONS (3)
  - Ischaemic skin ulcer [Recovering/Resolving]
  - Oedema peripheral [Recovering/Resolving]
  - Gangrene [Recovered/Resolved with Sequelae]

NARRATIVE: CASE EVENT DATE: 20200503
